FAERS Safety Report 12739169 (Version 2)
Quarter: 2017Q3

REPORT INFORMATION
  Report Type: Spontaneous
  Country: IT (occurrence: IT)
  Receive Date: 20160912
  Receipt Date: 20170726
  Transmission Date: 20171127
  Serious: Yes (Hospitalization, Other)
  Sender: FDA-Public Use
  Company Number: IT-PFIZER INC-2016421628

PATIENT
  Age: 77 Year
  Sex: Male

DRUGS (7)
  1. TORVAST [Suspect]
     Active Substance: ATORVASTATIN
     Indication: DYSLIPIDAEMIA
     Dosage: 80 MG, DAILY
     Route: 048
     Dates: start: 20160102, end: 20160805
  2. ENAPREN [Concomitant]
     Active Substance: ENALAPRIL MALEATE
  3. LYRICA [Concomitant]
     Active Substance: PREGABALIN
  4. ANTRA /00661201/ [Concomitant]
     Active Substance: OMEPRAZOLE
  5. CIPRALEX [Concomitant]
     Active Substance: ESCITALOPRAM OXALATE
  6. DILATREND [Concomitant]
     Active Substance: CARVEDILOL
  7. BRILIQUE [Concomitant]
     Active Substance: TICAGRELOR

REACTIONS (10)
  - Asthenia [Recovering/Resolving]
  - Pyrexia [Recovering/Resolving]
  - Transaminases increased [Recovering/Resolving]
  - Myalgia [Recovering/Resolving]
  - Blood creatine phosphokinase increased [Recovering/Resolving]
  - Gamma-glutamyltransferase increased [Recovering/Resolving]
  - Bilirubin conjugated increased [Not Recovered/Not Resolved]
  - Blood bilirubin increased [Not Recovered/Not Resolved]
  - Myoglobin blood increased [Recovering/Resolving]
  - Blood fibrinogen increased [Unknown]

NARRATIVE: CASE EVENT DATE: 20160805
